FAERS Safety Report 10542907 (Version 4)
Quarter: 2015Q1

REPORT INFORMATION
  Report Type: Spontaneous
  Country: GB (occurrence: GB)
  Receive Date: 20141027
  Receipt Date: 20150303
  Transmission Date: 20150720
  Serious: Yes (Other)
  Sender: FDA-Public Use
  Company Number: GB-ROCHE-1479114

PATIENT
  Sex: Female

DRUGS (1)
  1. HERCEPTIN [Suspect]
     Active Substance: TRASTUZUMAB
     Indication: PRODUCT USED FOR UNKNOWN INDICATION
     Dosage: CYCLE 12
     Route: 042

REACTIONS (11)
  - Insomnia [Unknown]
  - Nausea [Unknown]
  - Influenza like illness [Not Recovered/Not Resolved]
  - Urinary tract infection [Unknown]
  - Decreased appetite [Unknown]
  - Ill-defined disorder [Unknown]
  - Fatigue [Unknown]
  - Neuropathy peripheral [Unknown]
  - Constipation [Unknown]
  - Rash [Unknown]
  - Depressed mood [Unknown]
